FAERS Safety Report 4576986-1 (Version None)
Quarter: 2005Q1

REPORT INFORMATION
  Report Type: 
  Country: None (occurrence: None)
  Receive Date: 20050208
  Receipt Date: 20050125
  Transmission Date: 20050727
  Serious: Yes (Hospitalization)
  Sender: FDA-Public Use
  Company Number: 2005BI000653

PATIENT
  Age: 57 Year
  Sex: Female

DRUGS (1)
  1. AVONEX [Suspect]
     Indication: MULTIPLE SCLEROSIS
     Dosage: 30 UG;QW;IM
     Route: 030
     Dates: end: 20020101

REACTIONS (6)
  - BLOOD CALCIUM DECREASED [None]
  - CONSTIPATION [None]
  - PARATHYROID TUMOUR BENIGN [None]
  - POST PROCEDURAL COMPLICATION [None]
  - STOMACH DISCOMFORT [None]
  - TUMOUR HAEMORRHAGE [None]
